FAERS Safety Report 20426046 (Version 1)
Quarter: 2022Q1

REPORT INFORMATION
  Report Type: Report from Study
  Country: US (occurrence: US)
  Receive Date: 20220204
  Receipt Date: 20220204
  Transmission Date: 20220423
  Serious: No
  Sender: FDA-Public Use
  Company Number: US-EXELIXIS-CABO-21041133

PATIENT
  Age: 44 Year
  Sex: Male

DRUGS (2)
  1. CABOMETYX [Suspect]
     Active Substance: CABOZANTINIB S-MALATE
     Indication: Renal cancer
     Dosage: 40 MG, QD
     Route: 048
     Dates: start: 202105
  2. CABOMETYX [Suspect]
     Active Substance: CABOZANTINIB S-MALATE
     Dosage: 40 MG, QOD
     Route: 048
     Dates: start: 20210607

REACTIONS (20)
  - Tongue discomfort [Unknown]
  - Tooth infection [Unknown]
  - Insomnia [Unknown]
  - Irritability [Unknown]
  - Skin fissures [Unknown]
  - Vision blurred [Unknown]
  - Alopecia [Unknown]
  - Rash erythematous [Unknown]
  - Dry skin [Unknown]
  - Blood glucose increased [Unknown]
  - Fatigue [Recovered/Resolved]
  - Decreased appetite [Unknown]
  - Muscle spasms [Unknown]
  - Constipation [Recovered/Resolved]
  - Weight decreased [Unknown]
  - Rash macular [Unknown]
  - Arthralgia [Unknown]
  - Rash [Recovering/Resolving]
  - Stomatitis [Unknown]
  - Inappropriate schedule of product administration [Unknown]

NARRATIVE: CASE EVENT DATE: 20210510
